FAERS Safety Report 14548397 (Version 1)
Quarter: 2018Q1

REPORT INFORMATION
  Report Type: Spontaneous
  Country: US (occurrence: US)
  Receive Date: 20180219
  Receipt Date: 20180219
  Transmission Date: 20180509
  Serious: No
  Sender: FDA-Public Use
  Company Number: US-ROCHE-1904614

PATIENT
  Age: 56 Year
  Sex: Male
  Weight: 115.77 kg

DRUGS (7)
  1. LANTUS [Concomitant]
     Active Substance: INSULIN GLARGINE
     Indication: TYPE 1 DIABETES MELLITUS
     Dosage: 70U
     Route: 058
  2. APAP/CODEINE [Concomitant]
     Active Substance: ACETAMINOPHEN\CODEINE PHOSPHATE
     Indication: PAIN
     Dosage: 1 IN 4-6 HOURS AS NEEDED
     Route: 048
  3. XOLAIR [Suspect]
     Active Substance: OMALIZUMAB
     Route: 058
     Dates: start: 20170222, end: 20170315
  4. HCTZ [Concomitant]
     Active Substance: HYDROCHLOROTHIAZIDE
     Indication: HYPERTENSION
     Route: 048
  5. XOLAIR [Suspect]
     Active Substance: OMALIZUMAB
     Route: 058
     Dates: start: 20170125, end: 20170315
  6. XOLAIR [Suspect]
     Active Substance: OMALIZUMAB
     Indication: PRODUCT USED FOR UNKNOWN INDICATION
     Route: 058
     Dates: start: 20170115
  7. LOSARTAN. [Concomitant]
     Active Substance: LOSARTAN
     Indication: HYPERTENSION
     Route: 048

REACTIONS (16)
  - Hypoaesthesia [Recovered/Resolved]
  - Ear pain [Unknown]
  - Tremor [Recovering/Resolving]
  - Anxiety [Recovered/Resolved]
  - Upper respiratory tract infection [Recovered/Resolved]
  - Tunnel vision [Recovered/Resolved]
  - Burning sensation [Recovering/Resolving]
  - Burning sensation [Unknown]
  - Pain [Unknown]
  - Ear pain [Recovered/Resolved]
  - Tremor [Unknown]
  - Muscle spasms [Unknown]
  - Paranasal sinus discomfort [Unknown]
  - Stress [Recovered/Resolved]
  - Back pain [Recovering/Resolving]
  - Fatigue [Recovered/Resolved]

NARRATIVE: CASE EVENT DATE: 20170116
